FAERS Safety Report 20112947 (Version 5)
Quarter: 2022Q2

REPORT INFORMATION
  Report Type: Spontaneous
  Country: JP (occurrence: JP)
  Receive Date: 20211125
  Receipt Date: 20220407
  Transmission Date: 20220721
  Serious: Yes (Death, Hospitalization, Other)
  Sender: FDA-Public Use
  Company Number: JP-ONO-2021JP029252

PATIENT
  Age: 50 Year
  Sex: Male

DRUGS (4)
  1. OPDIVO [Suspect]
     Active Substance: NIVOLUMAB
     Indication: Metastatic renal cell carcinoma
     Dosage: UNK, 231MG
     Route: 041
     Dates: start: 20171127, end: 20200220
  2. OPDIVO [Suspect]
     Active Substance: NIVOLUMAB
     Dosage: 231MG
     Route: 041
     Dates: start: 20200304, end: 20201024
  3. LOXOPROFEN [Concomitant]
     Active Substance: LOXOPROFEN
     Indication: Product used for unknown indication
     Dosage: UNK
     Route: 065
  4. LOXOPROFEN [Concomitant]
     Active Substance: LOXOPROFEN
     Dosage: UNK
     Route: 065

REACTIONS (5)
  - Death [Fatal]
  - Bacterial colitis [Recovered/Resolved]
  - Small intestinal stenosis [Recovering/Resolving]
  - Pneumatosis intestinalis [Recovered/Resolved]
  - Enteritis [Unknown]

NARRATIVE: CASE EVENT DATE: 20200201
